FAERS Safety Report 20346889 (Version 1)
Quarter: 2022Q1

REPORT INFORMATION
  Report Type: Spontaneous
  Country: US (occurrence: None)
  Receive Date: 20220116
  Receipt Date: 20220116
  Transmission Date: 20220423
  Serious: Yes (Other)
  Sender: FDA-Public Use
  Company Number: None

PATIENT
  Age: 54 Year
  Sex: Female
  Weight: 69.75 kg

DRUGS (8)
  1. XIIDRA [Suspect]
     Active Substance: LIFITEGRAST
     Indication: Dry eye
     Dosage: OTHER QUANTITY : 1 DROP(S);?FREQUENCY : TWICE A DAY;?
     Route: 047
  2. SYNTHROID [Concomitant]
     Active Substance: LEVOTHYROXINE SODIUM
  3. CALCITRIOL [Concomitant]
     Active Substance: CALCITRIOL
  4. CALCIUM [Concomitant]
     Active Substance: CALCIUM
  5. REFRESH SOLUTION NOS [Concomitant]
     Active Substance: CARBOXYMETHYLCELLULOSE SODIUM\GLYCERIN
  6. LUTEIN [Concomitant]
     Active Substance: LUTEIN
  7. PROBIOTICS NOS [Concomitant]
     Active Substance: PROBIOTICS NOS
  8. PSYLLIUM FIBER [Concomitant]

REACTIONS (3)
  - Hyperaesthesia teeth [None]
  - Temperature intolerance [None]
  - Feeling cold [None]

NARRATIVE: CASE EVENT DATE: 20210101
